FAERS Safety Report 4707397-3 (Version None)
Quarter: 2005Q3

REPORT INFORMATION
  Report Type: 
  Country: None (occurrence: None)
  Receive Date: 20050706
  Receipt Date: 20040503
  Transmission Date: 20060218
  Serious: Yes (Hospitalization)
  Sender: FDA-Public Use
  Company Number: 2004SE02508

PATIENT
  Age: 6814 Day
  Sex: Female

DRUGS (10)
  1. DIPRIVAN [Suspect]
     Indication: ARTHROSCOPY
     Route: 042
     Dates: start: 20040430, end: 20040430
  2. DIPRIVAN [Suspect]
     Indication: INDUCTION OF ANAESTHESIA
     Route: 042
     Dates: start: 20040430, end: 20040430
  3. DIPRIVAN [Suspect]
     Indication: MAINTENANCE OF ANAESTHESIA
     Route: 042
     Dates: start: 20040430, end: 20040430
  4. MARCAIN-ADRENALIN [Concomitant]
     Indication: POSTOPERATIVE ANALGESIA
     Route: 014
     Dates: start: 20040429
  5. XYLOCAINE [Concomitant]
     Indication: LOCAL ANAESTHESIA
     Route: 014
     Dates: start: 20040429
  6. ULTIVA [Concomitant]
     Indication: INDUCTION OF ANAESTHESIA
     Route: 042
     Dates: start: 20040429, end: 20040429
  7. ULTIVA [Concomitant]
     Indication: MAINTENANCE OF ANAESTHESIA
     Route: 042
     Dates: start: 20040429, end: 20040429
  8. KETORAX [Concomitant]
     Indication: POSTOPERATIVE ANALGESIA
     Route: 042
     Dates: start: 20040429
  9. PARACET [Concomitant]
     Indication: PREMEDICATION
     Route: 048
     Dates: start: 20040429, end: 20040429
  10. VIOXX [Concomitant]
     Indication: PREMEDICATION
     Route: 048
     Dates: start: 20040429, end: 20040429

REACTIONS (6)
  - CHOREA [None]
  - DYSTONIA [None]
  - NEUROLOGICAL SYMPTOM [None]
  - PAIN [None]
  - POST PROCEDURAL COMPLICATION [None]
  - URTICARIA GENERALISED [None]
